FAERS Safety Report 5265997-9 (Version None)
Quarter: 2007Q1

REPORT INFORMATION
  Report Type: 
  Country: None (occurrence: None)
  Receive Date: 20070315
  Receipt Date: 20070305
  Transmission Date: 20070707
  Serious: Yes (Hospitalization, Other)
  Sender: FDA-Public Use
  Company Number: US-JNJFOC-20061104000

PATIENT
  Sex: Female
  Weight: 71.67 kg

DRUGS (6)
  1. REMICADE [Suspect]
     Route: 042
  2. REMICADE [Suspect]
     Route: 042
  3. REMICADE [Suspect]
     Route: 042
  4. REMICADE [Suspect]
     Indication: RHEUMATOID ARTHRITIS
     Route: 042
  5. BP MEDICATION [Concomitant]
     Indication: HYPERTENSION
  6. METHOTREXATE [Concomitant]

REACTIONS (2)
  - PSEUDOMONAS INFECTION [None]
  - ULCERATIVE KERATITIS [None]
